FAERS Safety Report 10097207 (Version 1)
Quarter: 2014Q2

REPORT INFORMATION
  Report Type: Spontaneous
  Country: BR (occurrence: BR)
  Receive Date: 20140422
  Receipt Date: 20140422
  Transmission Date: 20141212
  Serious: Yes (Other)
  Sender: FDA-Public Use
  Company Number: PHHY2014BR048286

PATIENT
  Sex: Female
  Weight: 28 kg

DRUGS (1)
  1. AMOXICILLIN + CLAVULANATE POTASSIUM [Suspect]
     Indication: COUGH
     Dosage: 7 ML, BID
     Route: 048
     Dates: start: 20140403

REACTIONS (2)
  - Incorrect product storage [Unknown]
  - Cough [Not Recovered/Not Resolved]
